FAERS Safety Report 17686352 (Version 1)
Quarter: 2020Q2

REPORT INFORMATION
  Report Type: Spontaneous
  Country: BR (occurrence: BR)
  Receive Date: 20200420
  Receipt Date: 20200420
  Transmission Date: 20200714
  Serious: Yes (Life-Threatening, Other)
  Sender: FDA-Public Use
  Company Number: BR-ELI_LILLY_AND_COMPANY-BR202004006323

PATIENT
  Sex: Female

DRUGS (1)
  1. HUMALOG [Suspect]
     Active Substance: INSULIN LISPRO
     Indication: PRODUCT USED FOR UNKNOWN INDICATION
     Dosage: UNK, UNKNOWN
     Route: 065
     Dates: start: 2005

REACTIONS (5)
  - Nervous system disorder [Unknown]
  - Cardio-respiratory arrest [Unknown]
  - Movement disorder [Unknown]
  - Cardio-respiratory arrest [Unknown]
  - Expired product administered [Unknown]

NARRATIVE: CASE EVENT DATE: 20191207
